FAERS Safety Report 7702039-7 (Version None)
Quarter: 2011Q3

REPORT INFORMATION
  Report Type: 
  Country: None (occurrence: None)
  Receive Date: 20110822
  Receipt Date: 20110817
  Transmission Date: 20111222
  Serious: Yes (Hospitalization)
  Sender: FDA-Public Use
  Company Number: US-PFIZER INC-2011146702

PATIENT
  Sex: Male

DRUGS (9)
  1. VX-950 [Suspect]
     Dosage: 1125 MG, 2X/DAY
     Dates: start: 20110513
  2. PEGASYS [Suspect]
     Dosage: 180 UG, WEEKLY
     Route: 058
     Dates: start: 20110511
  3. VX-950 [Suspect]
     Dosage: 1125 MG, 2X/DAY
     Route: 048
     Dates: start: 20110511, end: 20110512
  4. OXYCODONE [Concomitant]
     Indication: PAIN IN EXTREMITY
     Dosage: 30 MG, 1 AS NEEDED
     Route: 048
  5. OXYCONTIN [Concomitant]
     Indication: PAIN IN EXTREMITY
     Dosage: 80 MG, 3X/DAY
     Route: 048
  6. RIBAVIRIN [Suspect]
     Dosage: 600 MG, 2X/DAY
     Route: 048
     Dates: start: 20110511
  7. LYRICA [Suspect]
     Indication: PAIN
     Dosage: 75 MG, 3X/DAY
     Route: 048
  8. RIBAVIRIN [Suspect]
     Dosage: 600 MG, 2X/DAY
     Route: 048
     Dates: start: 20110513
  9. LEXAPRO [Concomitant]
     Indication: DEPRESSION
     Dosage: 20 MG, 1X/DAY
     Route: 048

REACTIONS (2)
  - MYOCLONUS [None]
  - MENTAL STATUS CHANGES [None]
